FAERS Safety Report 7737331-3 (Version None)
Quarter: 2011Q3

REPORT INFORMATION
  Report Type: 
  Country: None (occurrence: None)
  Receive Date: 20110908
  Receipt Date: 20110830
  Transmission Date: 20111222
  Serious: Yes (Hospitalization)
  Sender: FDA-Public Use
  Company Number: FR-B.I. PHARMACEUTICALS,INC./RIDGEFIELD-2011-FF-00804FF

PATIENT
  Sex: Male

DRUGS (4)
  1. PRADAXA [Suspect]
     Indication: ATRIAL FIBRILLATION
     Dosage: 220 MG
     Route: 048
     Dates: start: 20101201, end: 20110801
  2. IRBESARTAN AND HYDROCHLOROTHIAZIDE [Concomitant]
     Dosage: 300 MG
  3. PROPRANOLOL [Concomitant]
     Dosage: 20 MG
  4. LORAZEPAM [Concomitant]
     Dosage: 0.5 MG

REACTIONS (9)
  - FATIGUE [None]
  - HAEMATOMA [None]
  - GAIT DISTURBANCE [None]
  - DYSARTHRIA [None]
  - DRUG INEFFECTIVE [None]
  - WEIGHT DECREASED [None]
  - CEREBRAL SMALL VESSEL ISCHAEMIC DISEASE [None]
  - ISCHAEMIC STROKE [None]
  - FALL [None]
